FAERS Safety Report 9239703 (Version 1)
Quarter: 2013Q2

REPORT INFORMATION
  Report Type: Spontaneous
  Country: US (occurrence: US)
  Receive Date: 20130418
  Receipt Date: 20130418
  Transmission Date: 20140414
  Serious: No
  Sender: FDA-Public Use
  Company Number: US-PFIZER INC-2013121439

PATIENT
  Age: 23 Year
  Sex: Female
  Weight: 59.86 kg

DRUGS (5)
  1. CELEBREX [Suspect]
     Indication: NECK PAIN
     Dosage: 200 MG, 1X/DAY
     Route: 048
     Dates: start: 20130402, end: 20130404
  2. CELEBREX [Suspect]
     Indication: PAIN IN EXTREMITY
  3. ALLEGRA [Concomitant]
     Dosage: UNK
  4. TYLENOL [Concomitant]
     Indication: PAIN
     Dosage: UNK
  5. TYLENOL [Concomitant]
     Indication: HEADACHE

REACTIONS (9)
  - Urticaria [Recovering/Resolving]
  - Pruritus [Not Recovered/Not Resolved]
  - Muscle tightness [Not Recovered/Not Resolved]
  - Malaise [Not Recovered/Not Resolved]
  - Nausea [Not Recovered/Not Resolved]
  - Musculoskeletal discomfort [Not Recovered/Not Resolved]
  - Drug ineffective [Not Recovered/Not Resolved]
  - Pain [Not Recovered/Not Resolved]
  - Asthenia [Not Recovered/Not Resolved]
